FAERS Safety Report 13668946 (Version 1)
Quarter: 2017Q2

REPORT INFORMATION
  Report Type: Spontaneous
  Country: CA (occurrence: CA)
  Receive Date: 20170620
  Receipt Date: 20170620
  Transmission Date: 20170830
  Serious: Yes (Disabling, Other)
  Sender: FDA-Public Use
  Company Number: CA-SA-2017SA105857

PATIENT
  Age: 65 Year
  Sex: Female

DRUGS (13)
  1. ORENCIA [Suspect]
     Active Substance: ABATACEPT
     Route: 065
  2. ENBREL [Suspect]
     Active Substance: ETANERCEPT
     Route: 065
  3. HUMIRA [Suspect]
     Active Substance: ADALIMUMAB
     Indication: RHEUMATOID ARTHRITIS
     Dosage: SOLUTION SUBCUTANEOUS
     Route: 058
  4. ASPIRIN. [Concomitant]
     Active Substance: ASPIRIN
  5. ACTEMRA [Suspect]
     Active Substance: TOCILIZUMAB
     Route: 065
  6. FOLIC ACID. [Concomitant]
     Active Substance: FOLIC ACID
  7. LEFLUNOMIDE. [Suspect]
     Active Substance: LEFLUNOMIDE
     Route: 048
  8. HYDROXYCHLOROQUINE [Suspect]
     Active Substance: HYDROXYCHLOROQUINE
     Route: 048
  9. REMICADE [Suspect]
     Active Substance: INFLIXIMAB
     Route: 065
  10. METHOTREXATE. [Concomitant]
     Active Substance: METHOTREXATE
  11. CIMZIA [Suspect]
     Active Substance: CERTOLIZUMAB PEGOL
     Dosage: SOLUTION?SUBCUTANEOUS
     Route: 065
  12. RITUXAN [Suspect]
     Active Substance: RITUXIMAB
     Dosage: FORM: SOLUTION INTRAVENOUS
     Route: 065
  13. PREDNISONE. [Concomitant]
     Active Substance: PREDNISONE
     Route: 065

REACTIONS (7)
  - Headache [Recovered/Resolved]
  - Cerebrovascular accident [Recovered/Resolved]
  - Abasia [Recovered/Resolved]
  - Eye disorder [Recovered/Resolved]
  - Drug ineffective [Unknown]
  - Herpes zoster [Recovered/Resolved]
  - Rheumatoid arthritis [Recovered/Resolved]
